FAERS Safety Report 16237427 (Version 1)
Quarter: 2019Q2

REPORT INFORMATION
  Report Type: Spontaneous
  Country: US (occurrence: US)
  Receive Date: 20190424
  Receipt Date: 20190424
  Transmission Date: 20190711
  Serious: Yes (Other)
  Sender: FDA-Public Use
  Company Number: None

PATIENT
  Age: 74 Year
  Sex: Male
  Weight: 83 kg

DRUGS (1)
  1. YESCARTA [Suspect]
     Active Substance: AXICABTAGENE CILOLEUCEL
     Indication: LYMPHOMA
     Dosage: ?          OTHER FREQUENCY:ONCE ON 3/4/2019;?
     Route: 040
     Dates: start: 20190304, end: 20190304

REACTIONS (5)
  - Neurotoxicity [None]
  - Cytokine release syndrome [None]
  - Aphasia [None]
  - Fine motor skill dysfunction [None]
  - Somnolence [None]

NARRATIVE: CASE EVENT DATE: 20190304
